FAERS Safety Report 8704769 (Version 5)
Quarter: 2014Q1

REPORT INFORMATION
  Report Type: Spontaneous
  Country: US (occurrence: US)
  Receive Date: 20120803
  Receipt Date: 20140203
  Transmission Date: 20141002
  Serious: Yes (Hospitalization, Other)
  Sender: FDA-Public Use
  Company Number: US-009507513-1207USA010250

PATIENT
  Sex: Female

DRUGS (4)
  1. FOSAMAX [Suspect]
     Indication: OSTEOPOROSIS
     Dosage: UNK UNK, QD
     Route: 048
     Dates: start: 1999, end: 20090714
  2. FOSAMAX [Suspect]
     Indication: OSTEOPENIA
     Dosage: 70 MG, QW
     Route: 048
  3. EVISTA [Concomitant]
     Indication: OSTEOPOROSIS
     Dosage: 60 MG, QD
  4. BONIVA [Concomitant]

REACTIONS (52)
  - Femur fracture [Unknown]
  - Open reduction of fracture [Unknown]
  - Femur fracture [Unknown]
  - Open reduction of fracture [Unknown]
  - Vascular operation [Unknown]
  - Clear cell renal cell carcinoma [Unknown]
  - Nephrectomy [Unknown]
  - Liver operation [Unknown]
  - Foot operation [Unknown]
  - Bunion operation [Unknown]
  - Cataract operation [Unknown]
  - Cataract operation [Unknown]
  - Myocardial infarction [Unknown]
  - Loss of consciousness [Unknown]
  - Endodontic procedure [Unknown]
  - Vitamin D deficiency [Unknown]
  - Hepatic cyst [Unknown]
  - Colon adenoma [Unknown]
  - Gastrointestinal pain [Unknown]
  - Osteopenia [Unknown]
  - Hyperparathyroidism [Unknown]
  - Pleuritic pain [Unknown]
  - Scoliosis [Unknown]
  - Spinal osteoarthritis [Unknown]
  - Hepatic cyst [Unknown]
  - Localised intraabdominal fluid collection [Unknown]
  - Upper limb fracture [Unknown]
  - Rotator cuff syndrome [Unknown]
  - Rotator cuff syndrome [Unknown]
  - Cataract [Unknown]
  - Fibrocystic breast disease [Unknown]
  - Cataract [Unknown]
  - Bursitis [Unknown]
  - Cervical spinal stenosis [Unknown]
  - Fall [Unknown]
  - Head injury [Unknown]
  - Neck injury [Unknown]
  - Laceration [Unknown]
  - Contusion [Unknown]
  - Excoriation [Unknown]
  - Skin lesion [Unknown]
  - Ventricular extrasystoles [Unknown]
  - Supraventricular extrasystoles [Unknown]
  - Device breakage [Unknown]
  - Fracture nonunion [Recovered/Resolved]
  - Rib fracture [Recovered/Resolved]
  - Nipple disorder [Not Recovered/Not Resolved]
  - QRS axis abnormal [Unknown]
  - Intervertebral disc degeneration [Unknown]
  - Abdominal pain upper [Unknown]
  - Arthralgia [Unknown]
  - Back pain [Unknown]
